FAERS Safety Report 10053368 (Version 1)
Quarter: 2014Q2

REPORT INFORMATION
  Report Type: Report from Study
  Country: US (occurrence: US)
  Receive Date: 20140402
  Receipt Date: 20140402
  Transmission Date: 20141212
  Serious: Yes (Death)
  Sender: FDA-Public Use
  Company Number: US-PURDUE-USA-2014-0112459

PATIENT
  Age: 82 Year
  Sex: Male

DRUGS (2)
  1. BTDS PATCH [Suspect]
     Indication: BONE CANCER
     Dosage: 5 MCG/HR, WEEKLY
     Route: 062
     Dates: start: 20140306
  2. BTDS PATCH [Suspect]
     Indication: BACK PAIN

REACTIONS (1)
  - Malignant neoplasm progression [Fatal]
